FAERS Safety Report 18529460 (Version 1)
Quarter: 2020Q4

REPORT INFORMATION
  Report Type: Spontaneous
  Country: US (occurrence: US)
  Receive Date: 20201120
  Receipt Date: 20201120
  Transmission Date: 20210114
  Serious: Yes (Hospitalization, Other)
  Sender: FDA-Public Use
  Company Number: US-BAUSCH-BL-2020-034048

PATIENT
  Age: 66 Year
  Sex: Female

DRUGS (1)
  1. XIFAXAN [Suspect]
     Active Substance: RIFAXIMIN
     Indication: HEPATIC CIRRHOSIS
     Route: 048
     Dates: start: 201901, end: 2019

REACTIONS (6)
  - Condition aggravated [Unknown]
  - Fall [Recovering/Resolving]
  - Inability to afford medication [Unknown]
  - Therapy interrupted [Unknown]
  - Hepatic cirrhosis [Unknown]
  - Insurance issue [Unknown]

NARRATIVE: CASE EVENT DATE: 202010
